FAERS Safety Report 5193810-7 (Version None)
Quarter: 2006Q4

REPORT INFORMATION
  Report Type: 
  Country: None (occurrence: None)
  Receive Date: 20061228
  Receipt Date: 20061221
  Transmission Date: 20070319
  Serious: Yes (Hospitalization)
  Sender: FDA-Public Use
  Company Number: FR-AVENTIS-200614535FR

PATIENT
  Age: 72 Year
  Sex: Female

DRUGS (6)
  1. LASILIX                            /00032601/ [Suspect]
     Indication: HYPERTENSION
     Route: 048
  2. KAYEXALATE [Suspect]
     Route: 048
  3. GLUCOPHAGE [Suspect]
     Indication: DIABETES MELLITUS
     Route: 048
  4. OMEPRAZOLE [Suspect]
     Indication: DUODENITIS
     Route: 048
  5. HEMIGOXINE NATIVELLE [Suspect]
     Route: 048
  6. ACARBOSE [Suspect]
     Indication: DIABETES MELLITUS
     Route: 048

REACTIONS (3)
  - HYPOGLYCAEMIA [None]
  - MALAISE [None]
  - VOMITING [None]
